FAERS Safety Report 8263040-0 (Version None)
Quarter: 2012Q2

REPORT INFORMATION
  Report Type: 
  Country: None (occurrence: None)
  Receive Date: 20120405
  Receipt Date: 20120329
  Transmission Date: 20120825
  Serious: Yes (Other)
  Sender: FDA-Public Use
  Company Number: JP-VERTEX PHARMACEUTICALS INC.-AE-2012-003668

PATIENT
  Age: 56 Year
  Sex: Male

DRUGS (10)
  1. RIBAVIRIN [Concomitant]
     Route: 048
     Dates: start: 20120220, end: 20120311
  2. MAGNESIUM OXIDE [Concomitant]
     Route: 048
     Dates: start: 20120206
  3. NEXIUM [Concomitant]
     Dates: start: 20120305
  4. RIBAVIRIN [Concomitant]
     Indication: HEPATITIS C
     Route: 048
     Dates: start: 20120206, end: 20120219
  5. MOTILIUM [Concomitant]
     Route: 048
     Dates: start: 20120315
  6. TELAVIC (TELAPREVIR) [Suspect]
     Indication: HEPATITIS C
     Route: 048
     Dates: start: 20120206
  7. RIBAVIRIN [Concomitant]
     Route: 048
     Dates: start: 20120312
  8. DIOVAN [Concomitant]
     Route: 048
     Dates: start: 20120213
  9. PURSENNID [Concomitant]
     Route: 048
     Dates: start: 20120312
  10. PEGINTERFERON [Concomitant]
     Indication: HEPATITIS C
     Route: 058
     Dates: start: 20120206

REACTIONS (7)
  - PYREXIA [None]
  - RASH [None]
  - DEPRESSION [None]
  - PRURITUS [None]
  - HAEMOGLOBIN DECREASED [None]
  - INSOMNIA [None]
  - HYPERURICAEMIA [None]
